FAERS Safety Report 15713516 (Version 1)
Quarter: 2018Q4

REPORT INFORMATION
  Report Type: Spontaneous
  Country: US (occurrence: US)
  Receive Date: 20181212
  Receipt Date: 20181212
  Transmission Date: 20190205
  Serious: Yes (Hospitalization)
  Sender: FDA-Public Use
  Company Number: None

PATIENT
  Age: 32 Year
  Sex: Female
  Weight: 53.1 kg

DRUGS (1)
  1. CUVITRU [Suspect]
     Active Substance: HUMAN IMMUNOGLOBULIN G
     Indication: IMMUNODEFICIENCY
     Dosage: ?          OTHER FREQUENCY:EVERY 3-4 DAYS;?
     Route: 058
     Dates: start: 20181211, end: 20181211

REACTIONS (11)
  - Feeling abnormal [None]
  - Urinary tract infection [None]
  - Infusion site pain [None]
  - Infusion site swelling [None]
  - Pyrexia [None]
  - Hyperhidrosis [None]
  - Chromaturia [None]
  - Chills [None]
  - Flank pain [None]
  - Pollakiuria [None]
  - Infusion site erythema [None]

NARRATIVE: CASE EVENT DATE: 20181212
